FAERS Safety Report 4616741-7 (Version None)
Quarter: 2005Q1

REPORT INFORMATION
  Report Type: 
  Country: None (occurrence: None)
  Receive Date: 20050321
  Receipt Date: 20050304
  Transmission Date: 20050727
  Serious: Yes (Other)
  Sender: FDA-Public Use
  Company Number: JP-2005-001320

PATIENT
  Age: 63 Year
  Sex: Male

DRUGS (2)
  1. PROSCOPE   300  (IOPROMIDE) [Suspect]
     Indication: ANGIOGRAM CEREBRAL
     Dosage: 12 ML, 1 DOSE, INTRA-ARTERIAL
     Route: 013
     Dates: start: 20050127, end: 20050127
  2. DEXTRAN 40 + GLUKOS (DEXTRAN 40) [Concomitant]

REACTIONS (9)
  - DYSPNOEA [None]
  - FLUSHING [None]
  - HYPERAEMIA [None]
  - HYPERSENSITIVITY [None]
  - NAUSEA [None]
  - OCULAR HYPERAEMIA [None]
  - PHARYNGEAL OEDEMA [None]
  - SNEEZING [None]
  - VOMITING [None]
